FAERS Safety Report 9244956 (Version 1)
Quarter: 2013Q1

REPORT INFORMATION
  Report Type: Spontaneous
  Country: US (occurrence: None)
  Receive Date: 20121130
  Receipt Date: 20121130
  Transmission Date: 20140127
  Serious: Yes (Hospitalization, Other)
  Sender: FDA-Public Use
  Company Number: US201209004513

PATIENT
  Sex: 0
  Weight: 77.1 kg

DRUGS (7)
  1. BYDUREON [Suspect]
     Indication: TYPE 2 DIABETES MELLITUS
     Route: 058
     Dates: start: 20120424, end: 20120807
  2. GLIMEPIRIDE (GLIMEPIRIDE) [Concomitant]
  3. METFORMIN (METFORMIN) [Concomitant]
  4. DIOVAN (VALSARTAN) [Concomitant]
  5. HCT (HYDROCHLOROTHIAZIDE) [Concomitant]
  6. NADOLOL (NADOLOL) [Concomitant]
  7. ACE INHIBITORS [Concomitant]

REACTIONS (1)
  - Pancreatitis [None]
